FAERS Safety Report 8902868 (Version 1)
Quarter: 2012Q4

REPORT INFORMATION
  Report Type: 
  Country: US (occurrence: US)
  Receive Date: 20121112
  Receipt Date: 20121112
  Transmission Date: 20130627
  Serious: No
  Sender: FDA-Public Use
  Company Number: US-PFIZER INC-2012280092

PATIENT
  Sex: Female

DRUGS (5)
  1. ERYTHROMYCIN [Suspect]
  2. DILANTIN [Suspect]
  3. HALDOL [Suspect]
  4. PHENOBARBITAL [Suspect]
  5. MELLARIL [Suspect]

REACTIONS (1)
  - Drug hypersensitivity [Unknown]
